FAERS Safety Report 25273857 (Version 1)
Quarter: 2025Q2

REPORT INFORMATION
  Report Type: Spontaneous
  Country: CN (occurrence: CN)
  Receive Date: 20250506
  Receipt Date: 20250506
  Transmission Date: 20250717
  Serious: Yes (Hospitalization)
  Sender: FRESENIUS KABI
  Company Number: CN-FreseniusKabi-FK202506482

PATIENT
  Age: 33 Year
  Sex: Female
  Weight: 58 kg

DRUGS (4)
  1. PROPOFOL [Suspect]
     Active Substance: PROPOFOL
     Indication: Eructation
     Dosage: THERAPY START TIME: 11:33?FOA: INJECTION?ROA: INTRAVENOUS BOLUS
     Dates: start: 20250304, end: 20250304
  2. PROPOFOL [Suspect]
     Active Substance: PROPOFOL
     Indication: Sedation
     Dosage: FOA: INJECTION?ROA: INTRAVENOUS INJECTION
     Dates: start: 20250304, end: 20250304
  3. ETOMIDATE [Concomitant]
     Active Substance: ETOMIDATE
     Indication: Product used for unknown indication
  4. ALFENTANIL [Concomitant]
     Active Substance: ALFENTANIL
     Indication: Product used for unknown indication

REACTIONS (3)
  - Dyskinesia [Recovered/Resolved]
  - Tachypnoea [Recovered/Resolved]
  - Tension [Recovered/Resolved]

NARRATIVE: CASE EVENT DATE: 20250304
